FAERS Safety Report 9551336 (Version 1)
Quarter: 2013Q3

REPORT INFORMATION
  Report Type: Spontaneous
  Country: US (occurrence: None)
  Receive Date: 20130923
  Receipt Date: 20130923
  Transmission Date: 20140515
  Serious: Yes (Life-Threatening)
  Sender: FDA-Public Use
  Company Number: None

PATIENT
  Age: 0 Day
  Sex: Female
  Weight: 1 kg

DRUGS (1)
  1. INFASURF [Suspect]
     Indication: NEONATAL RESPIRATORY DISTRESS SYNDROME
     Dosage: (IN 2 X 1.5 ML ALIIQUOTS)  PRN/AS NEEDED  RESPIRATORY
     Route: 055
     Dates: start: 20130921

REACTIONS (3)
  - Foaming at mouth [None]
  - Heart rate decreased [None]
  - Breath sounds absent [None]
